FAERS Safety Report 6033063-0 (Version None)
Quarter: 2009Q1

REPORT INFORMATION
  Report Type: 
  Country: None (occurrence: None)
  Receive Date: 20090109
  Receipt Date: 20081229
  Transmission Date: 20090719
  Serious: Yes (Death)
  Sender: FDA-Public Use
  Company Number: US-PFIZER INC-2008160660

PATIENT
  Sex: Female

DRUGS (3)
  1. DETROL [Suspect]
     Dosage: UNK
  2. CELEBREX [Suspect]
     Dosage: UNK
  3. LYRICA [Suspect]
     Dosage: UNIT DOSE: UNKNOWN;

REACTIONS (1)
  - DEATH [None]
